FAERS Safety Report 7212372-3 (Version None)
Quarter: 2011Q1

REPORT INFORMATION
  Report Type: 
  Country: None (occurrence: None)
  Receive Date: 20110106
  Receipt Date: 20110104
  Transmission Date: 20110831
  Serious: Yes (Hospitalization, Disabling)
  Sender: FDA-Public Use
  Company Number: US-BRISTOL-MYERS SQUIBB COMPANY-15470701

PATIENT
  Age: 36 Year
  Sex: Male
  Weight: 70 kg

DRUGS (2)
  1. ARIXTRA [Suspect]
     Indication: PULMONARY EMBOLISM
     Dosage: INJECTION
     Dates: start: 20100917, end: 20101001
  2. COUMADIN [Suspect]
     Indication: PULMONARY EMBOLISM
     Route: 065
     Dates: end: 20101001

REACTIONS (2)
  - DEEP VEIN THROMBOSIS [None]
  - MYALGIA [None]
